FAERS Safety Report 13320476 (Version 1)
Quarter: 2017Q1

REPORT INFORMATION
  Report Type: Spontaneous
  Country: GB (occurrence: GB)
  Receive Date: 20170310
  Receipt Date: 20170310
  Transmission Date: 20170428
  Serious: Yes (Other)
  Sender: FDA-Public Use
  Company Number: GB-GLAXOSMITHKLINE-GB2017033862

PATIENT
  Age: 33 Year
  Sex: Male

DRUGS (2)
  1. BECONASE AQ [Suspect]
     Active Substance: BECLOMETHASONE DIPROPIONATE MONOHYDRATE
     Indication: SINUS DISORDER
     Dosage: UNK
     Route: 045
     Dates: start: 20170227, end: 20170227
  2. PREGABALIN. [Concomitant]
     Active Substance: PREGABALIN
     Dosage: UNK
     Route: 065

REACTIONS (2)
  - Rash erythematous [Not Recovered/Not Resolved]
  - Anxiety [Not Recovered/Not Resolved]
